FAERS Safety Report 12108782 (Version 1)
Quarter: 2016Q1

REPORT INFORMATION
  Report Type: Spontaneous
  Country: US (occurrence: US)
  Receive Date: 20160224
  Receipt Date: 20160224
  Transmission Date: 20160526
  Serious: No
  Sender: FDA-Public Use
  Company Number: US-BAYER-2016-035788

PATIENT
  Age: 20 Year
  Sex: Male

DRUGS (1)
  1. ULTRAVIST [Suspect]
     Active Substance: IOPROMIDE
     Dosage: 115 ML, ONCE
     Dates: start: 20160107, end: 20160107

REACTIONS (2)
  - Swollen tongue [None]
  - Urticaria [None]

NARRATIVE: CASE EVENT DATE: 20160107
